FAERS Safety Report 25118712 (Version 1)
Quarter: 2025Q1

REPORT INFORMATION
  Report Type: Spontaneous
  Country: IE (occurrence: IE)
  Receive Date: 20250325
  Receipt Date: 20250325
  Transmission Date: 20250409
  Serious: Yes (Other)
  Sender: AMGEN
  Company Number: IE-AMGEN-IRLSP2025053323

PATIENT
  Age: 66 Year
  Sex: Male

DRUGS (1)
  1. APREMILAST [Suspect]
     Active Substance: APREMILAST
     Indication: Psoriasis
     Route: 065

REACTIONS (2)
  - Invasive ductal breast carcinoma [Unknown]
  - Drug ineffective [Unknown]
